FAERS Safety Report 8004655-4 (Version None)
Quarter: 2011Q4

REPORT INFORMATION
  Report Type: 
  Country: None (occurrence: None)
  Receive Date: 20111219
  Receipt Date: 20111202
  Transmission Date: 20120403
  Serious: Yes (Other)
  Sender: FDA-Public Use
  Company Number: FK201102911

PATIENT
  Sex: Male

DRUGS (2)
  1. CAPECITABINE [Concomitant]
  2. OXALIPLATIN [Suspect]
     Indication: COLON CANCER METASTATIC

REACTIONS (1)
  - CARCINOEMBRYONIC ANTIGEN INCREASED [None]
